FAERS Safety Report 6032350-X (Version None)
Quarter: 2009Q1

REPORT INFORMATION
  Report Type: 
  Country: None (occurrence: None)
  Receive Date: 20090109
  Receipt Date: 20090106
  Transmission Date: 20090719
  Serious: Yes (Other)
  Sender: FDA-Public Use
  Company Number: US-ASTRAZENECA-2009UW00421

PATIENT
  Sex: Female
  Weight: 54.9 kg

DRUGS (8)
  1. IRESSA [Suspect]
     Indication: LUNG NEOPLASM MALIGNANT
     Route: 048
     Dates: start: 20040101, end: 20090101
  2. PREDNISONE [Concomitant]
  3. TESSALON PERLS [Concomitant]
  4. XANAX [Concomitant]
  5. ZYBAN [Concomitant]
  6. REGLAN [Concomitant]
  7. CELEXA [Concomitant]
  8. RESTORIL [Concomitant]

REACTIONS (5)
  - DIARRHOEA [None]
  - FAECAL INCONTINENCE [None]
  - RASH [None]
  - SKIN ATROPHY [None]
  - SKIN LESION [None]
